FAERS Safety Report 4395948-0 (Version None)
Quarter: 2004Q3

REPORT INFORMATION
  Report Type: 
  Country: None (occurrence: None)
  Receive Date: 20040707
  Receipt Date: 20040623
  Transmission Date: 20050211
  Serious: Yes (Hospitalization, Other)
  Sender: FDA-Public Use
  Company Number: 2002122979JP

PATIENT
  Weight: 1.8 kg

DRUGS (15)
  1. IDAMYCIN (DARUBICIN HYDROCHLORIDE) POWDER, STERILE [Suspect]
     Indication: ACUTE MYELOID LEUKAEMIA
     Dosage: 19 MG, CYCLIC, IV
     Route: 042
     Dates: start: 20020816, end: 20020818
  2. CYCLOCIDE (CYTARABINE) [Suspect]
     Indication: ACUTE MYELOID LEUKAEMIA
     Dosage: SEE IMAGE
     Dates: start: 20020723, end: 20020802
  3. CYCLOCIDE (CYTARABINE) [Suspect]
     Indication: ACUTE MYELOID LEUKAEMIA
     Dosage: SEE IMAGE
     Dates: start: 20020816, end: 20020822
  4. DAUNOMYCIN (DAUNOMYCIN) [Concomitant]
  5. POLYMYXIN B SULFATE [Concomitant]
  6. FUNGIZONE [Concomitant]
  7. BAKTAR [Concomitant]
  8. CARBENIN (BETAMIPRON, PANIPENEM) [Concomitant]
  9. AMIKACIN SULFATE [Concomitant]
  10. MODACIN (CEFTAZIDIME) [Concomitant]
  11. CLINDAMYCIN HCL [Concomitant]
  12. FIRSTCIN [Concomitant]
  13. MINOMYCIN [Concomitant]
  14. DIFLUCAN [Concomitant]
  15. MEROPENEM (MEROPENEM) [Concomitant]

REACTIONS (14)
  - APGAR SCORE LOW [None]
  - BONE MARROW DEPRESSION [None]
  - CAESAREAN SECTION [None]
  - CARDIAC ARREST NEONATAL [None]
  - CARDIAC OUTPUT DECREASED [None]
  - DRUG EXPOSURE DURING PREGNANCY [None]
  - FOETAL HEART RATE DECELERATION [None]
  - FOETAL HEART RATE INCREASED [None]
  - FOETAL MOVEMENTS DECREASED [None]
  - HEPATIC FUNCTION ABNORMAL [None]
  - NEONATAL DISORDER [None]
  - OLIGOHYDRAMNIOS [None]
  - PLACENTAL DISORDER [None]
  - UMBILICAL CORD COMPRESSION [None]
